FAERS Safety Report 24239169 (Version 1)
Quarter: 2024Q3

REPORT INFORMATION
  Report Type: Spontaneous
  Country: US (occurrence: None)
  Receive Date: 20240822
  Receipt Date: 20240822
  Transmission Date: 20241017
  Serious: Yes (Life-Threatening, Hospitalization)
  Sender: Public
  Company Number: None

PATIENT
  Age: 66 Year
  Sex: Female
  Weight: 103 kg

DRUGS (14)
  1. KEYTRUDA [Suspect]
     Active Substance: PEMBROLIZUMAB
     Indication: Triple negative breast cancer
     Dosage: OTHER FREQUENCY : EVERY 3 WEEKS;?
     Route: 042
     Dates: start: 20240517, end: 20240801
  2. PACLITAXEL [Suspect]
     Active Substance: PACLITAXEL
     Dates: start: 20240517, end: 20240801
  3. CARBOPLATIN [Suspect]
     Active Substance: CARBOPLATIN
     Dates: start: 20240517, end: 20240801
  4. LANTUS [Concomitant]
     Active Substance: INSULIN GLARGINE
     Dates: start: 20200723
  5. JANUVIA [Concomitant]
     Active Substance: SITAGLIPTIN PHOSPHATE
     Dates: start: 20210427
  6. PRANDIN [Concomitant]
     Active Substance: REPAGLINIDE
     Dates: start: 20210304
  7. OLMESARTAN [Concomitant]
     Active Substance: OLMESARTAN
     Dates: start: 20210427
  8. METFORMIN [Concomitant]
     Active Substance: METFORMIN HYDROCHLORIDE
     Dates: start: 20210622
  9. CLONAZEPAM [Concomitant]
     Active Substance: CLONAZEPAM
     Dates: start: 20240502
  10. AMLODIPINE [Concomitant]
     Active Substance: AMLODIPINE BESYLATE
     Dates: start: 20210605
  11. ATORVASTATIN [Concomitant]
     Active Substance: ATORVASTATIN
     Dates: start: 20230923
  12. FLUCONAZOLE [Concomitant]
     Active Substance: FLUCONAZOLE
     Dates: start: 20240721, end: 20240804
  13. DOXORUBICIN [Suspect]
     Active Substance: DOXORUBICIN
  14. CYCLOPHOSPHAMIDE [Suspect]
     Active Substance: CYCLOPHOSPHAMIDE

REACTIONS (7)
  - Hepatitis cholestatic [None]
  - Hepatic necrosis [None]
  - Abdominal injury [None]
  - Cholangitis [None]
  - Steatohepatitis [None]
  - Hepatic fibrosis [None]
  - Metabolic syndrome [None]

NARRATIVE: CASE EVENT DATE: 20240808
